FAERS Safety Report 8313459-4 (Version None)
Quarter: 2012Q2

REPORT INFORMATION
  Report Type: 
  Country: None (occurrence: None)
  Receive Date: 20120424
  Receipt Date: 20120412
  Transmission Date: 20120825
  Serious: Yes (Other)
  Sender: FDA-Public Use
  Company Number: 1258198

PATIENT
  Age: 30 Year
  Sex: Female

DRUGS (1)
  1. PACLITAXEL [Suspect]
     Indication: BREAST CANCER
     Dosage: 119 MG MILLIGRAM(S), INTRAVENOUS (NOT OTHERWISE SPECIFIED)
     Route: 042
     Dates: start: 20120406, end: 20120406

REACTIONS (5)
  - NAUSEA [None]
  - FLUSHING [None]
  - COUGH [None]
  - ABDOMINAL PAIN UPPER [None]
  - INFUSION RELATED REACTION [None]
